FAERS Safety Report 24862002 (Version 1)
Quarter: 2025Q1

REPORT INFORMATION
  Report Type: Spontaneous
  Country: SG (occurrence: SG)
  Receive Date: 20250120
  Receipt Date: 20250120
  Transmission Date: 20250409
  Serious: Yes (Death, Other)
  Sender: GLAXOSMITHKLINE
  Company Number: SG-TAKEDA-2025TUS005103

PATIENT

DRUGS (3)
  1. ZEJULA [Suspect]
     Active Substance: NIRAPARIB
     Indication: Product used for unknown indication
     Route: 065
     Dates: start: 202101, end: 202211
  2. ZEJULA [Suspect]
     Active Substance: NIRAPARIB
     Route: 065
  3. AMLODIPINE [Concomitant]
     Active Substance: AMLODIPINE BESYLATE
     Indication: Product used for unknown indication
     Route: 065

REACTIONS (7)
  - Death [Fatal]
  - Malignant biliary obstruction [Unknown]
  - Ascites [Unknown]
  - Leukopenia [Unknown]
  - Neutropenia [Unknown]
  - Insomnia [Unknown]
  - Fatigue [Unknown]
